FAERS Safety Report 21405836 (Version 1)
Quarter: 2022Q4

REPORT INFORMATION
  Report Type: Spontaneous
  Country: US (occurrence: US)
  Receive Date: 20221004
  Receipt Date: 20221004
  Transmission Date: 20230113
  Serious: No
  Sender: FDA-Public Use
  Company Number: US-BION-010128

PATIENT

DRUGS (1)
  1. IMODIUM A-D [Suspect]
     Active Substance: LOPERAMIDE HYDROCHLORIDE
     Indication: Product used for unknown indication
     Dosage: TOOK 2 IMODIUM SOFT GEL

REACTIONS (3)
  - Product leakage [Unknown]
  - Poor quality product administered [Not Recovered/Not Resolved]
  - Product packaging difficult to open [Unknown]
